FAERS Safety Report 14851795 (Version 1)
Quarter: 2018Q2

REPORT INFORMATION
  Report Type: Spontaneous
  Country: US (occurrence: US)
  Receive Date: 20180507
  Receipt Date: 20180507
  Transmission Date: 20180711
  Serious: Yes (Hospitalization, Other)
  Sender: FDA-Public Use
  Company Number: US-CPL-000418

PATIENT
  Age: 65 Year
  Sex: Female

DRUGS (1)
  1. HYDRALAZINE/HYDRALAZINE HYDROCHLORIDE [Suspect]
     Active Substance: HYDRALAZINE HYDROCHLORIDE
     Indication: PRODUCT USED FOR UNKNOWN INDICATION
     Dosage: 100 MG TID, MORE THAN 12 MONTHS

REACTIONS (2)
  - End stage renal disease [Recovered/Resolved]
  - Glomerulonephritis rapidly progressive [Recovered/Resolved]
